FAERS Safety Report 21696406 (Version 1)
Quarter: 2022Q4

REPORT INFORMATION
  Report Type: Spontaneous
  Country: US (occurrence: US)
  Receive Date: 20221207
  Receipt Date: 20221207
  Transmission Date: 20230112
  Serious: No
  Sender: FDA-Public Use
  Company Number: US-NOVOPROD-965691

PATIENT
  Age: 79 Year
  Sex: Female

DRUGS (5)
  1. NOVOLIN 70/30 [Suspect]
     Active Substance: INSULIN HUMAN
     Indication: Product used for unknown indication
     Dosage: 60 UNITS
     Route: 058
     Dates: start: 2009
  2. METOPROLOL TARTRATE [Concomitant]
     Active Substance: METOPROLOL TARTRATE
     Dosage: 100 MG TWICE DAILY
  3. GABAPENTIN [Concomitant]
     Active Substance: GABAPENTIN
     Dosage: 200 MG 3X DAILY
  4. SPIRONOLACTONE [Concomitant]
     Active Substance: SPIRONOLACTONE
     Dosage: 25 MG DAILLY
  5. TRAMADOL [Concomitant]
     Active Substance: TRAMADOL
     Dosage: 50 MG 3X DAILY

REACTIONS (3)
  - Rash [Unknown]
  - Rash [Unknown]
  - Blood glucose decreased [Unknown]

NARRATIVE: CASE EVENT DATE: 20200101
